APPROVED DRUG PRODUCT: DEXTROAMPHETAMINE SULFATE
Active Ingredient: DEXTROAMPHETAMINE SULFATE
Strength: 10MG
Dosage Form/Route: CAPSULE, EXTENDED RELEASE;ORAL
Application: A206735 | Product #002
Applicant: PHARMOBEDIENT CONSULTING LLC
Approved: Jan 27, 2016 | RLD: No | RS: No | Type: DISCN